FAERS Safety Report 18386917 (Version 3)
Quarter: 2022Q1

REPORT INFORMATION
  Report Type: Spontaneous
  Country: US (occurrence: US)
  Receive Date: 20201015
  Receipt Date: 20220302
  Transmission Date: 20220424
  Serious: No
  Sender: FDA-Public Use
  Company Number: US-PFIZER INC-2020398675

PATIENT
  Age: 70 Year
  Sex: Female

DRUGS (1)
  1. XELJANZ XR [Suspect]
     Active Substance: TOFACITINIB CITRATE
     Indication: Gastrooesophageal reflux disease
     Dosage: 11 MG, DAILY
     Route: 048

REACTIONS (5)
  - Dyspnoea [Unknown]
  - Confusional state [Unknown]
  - Pain in extremity [Unknown]
  - Off label use [Unknown]
  - Liver function test increased [Unknown]
